FAERS Safety Report 17958648 (Version 1)
Quarter: 2020Q2

REPORT INFORMATION
  Report Type: Spontaneous
  Country: US (occurrence: US)
  Receive Date: 20200629
  Receipt Date: 20200629
  Transmission Date: 20200714
  Serious: Yes (Death, Hospitalization)
  Sender: FDA-Public Use
  Company Number: US-PFIZER INC-2020-07668

PATIENT
  Age: 67 Year
  Sex: Female

DRUGS (2)
  1. BRAFTOVI [Suspect]
     Active Substance: ENCORAFENIB
     Dosage: 450 MG, 1X/DAY
  2. MEKTOVI [Suspect]
     Active Substance: BINIMETINIB
     Dosage: 45 MG, 2X/DAY

REACTIONS (10)
  - Asthenia [Unknown]
  - Metastases to central nervous system [Unknown]
  - Hyponatraemia [Unknown]
  - Neoplasm progression [Fatal]
  - Odynophagia [Unknown]
  - Atrial tachycardia [Unknown]
  - Brain oedema [Unknown]
  - Hemiparesis [Unknown]
  - Seizure [Unknown]
  - Essential hypertension [Unknown]
